FAERS Safety Report 5958291-1 (Version None)
Quarter: 2008Q4

REPORT INFORMATION
  Report Type: 
  Country: None (occurrence: None)
  Receive Date: 20081119
  Receipt Date: 20081111
  Transmission Date: 20090506
  Serious: Yes (Other)
  Sender: FDA-Public Use
  Company Number: US-BAYER-200814370BCC

PATIENT
  Age: 66 Year
  Sex: Female
  Weight: 86 kg

DRUGS (5)
  1. ASPIRIN [Suspect]
     Indication: DRUG USE FOR UNKNOWN INDICATION
  2. CELEBREX [Suspect]
     Indication: ARTHRALGIA
     Dosage: TOTAL DAILY DOSE: 200 MG  UNIT DOSE: 200 MG
     Route: 048
     Dates: start: 20071001, end: 20081010
  3. LASIX [Suspect]
     Indication: SWELLING
     Dates: start: 20080101
  4. NAPROXEN [Suspect]
     Indication: DRUG USE FOR UNKNOWN INDICATION
  5. BLOOD PRESSURE PILL - NOS [Concomitant]
     Dates: end: 20081001

REACTIONS (10)
  - ARTHRALGIA [None]
  - CONTUSION [None]
  - DIZZINESS [None]
  - FEELING ABNORMAL [None]
  - HYPOTENSION [None]
  - INSOMNIA [None]
  - JOINT SWELLING [None]
  - RASH [None]
  - SWELLING [None]
  - THROMBOSIS [None]
